FAERS Safety Report 5467690-6 (Version None)
Quarter: 2007Q3

REPORT INFORMATION
  Report Type: 
  Country: None (occurrence: None)
  Receive Date: 20070921
  Receipt Date: 20070911
  Transmission Date: 20080115
  Serious: Yes (Disabling)
  Sender: FDA-Public Use
  Company Number: OSCN-NO-0709S-0361

PATIENT
  Age: 14 Year
  Sex: Male

DRUGS (1)
  1. OMNISCAN [Suspect]
     Indication: URINARY TRACT MALFORMATION
     Dosage: SINGLE DOSE
     Dates: start: 20070101, end: 20070101

REACTIONS (1)
  - NEPHROGENIC SYSTEMIC FIBROSIS [None]
